FAERS Safety Report 12563715 (Version 2)
Quarter: 2016Q3

REPORT INFORMATION
  Report Type: Spontaneous
  Country: US (occurrence: US)
  Receive Date: 20160716
  Receipt Date: 20160825
  Transmission Date: 20161109
  Serious: No
  Sender: FDA-Public Use
  Company Number: US-ASTRAZENECA-2016SE75247

PATIENT
  Age: 63 Year
  Sex: Female
  Weight: 109 kg

DRUGS (34)
  1. ATORVASTATIN [Concomitant]
     Active Substance: ATORVASTATIN
     Indication: BLOOD CHOLESTEROL INCREASED
     Dosage: 80 MG, 1X/DAY
  2. FISH OIL [Concomitant]
     Active Substance: FISH OIL
     Indication: PROPHYLAXIS
     Dosage: 1200 MG, 1X/DAY
  3. LISINOPRIL. [Concomitant]
     Active Substance: LISINOPRIL
     Indication: HYPERTENSION
     Dosage: 10 MG, 1X/DAY
  4. CHOLEST-OFF [Concomitant]
     Active Substance: DIETARY SUPPLEMENT
     Indication: BLOOD CHOLESTEROL INCREASED
     Dosage: 90 MG, 1X/DAY
  5. ASCORBIC ACID. [Concomitant]
     Active Substance: ASCORBIC ACID
  6. COLECALCIFEROL [Concomitant]
     Active Substance: CHOLECALCIFEROL
  7. MAGNESIUM OXIDE. [Concomitant]
     Active Substance: MAGNESIUM OXIDE
  8. SITOSTEROL [Concomitant]
     Indication: BLOOD CHOLESTEROL ABNORMAL
  9. BETACAROTENE [Concomitant]
     Active Substance: .BETA.-CAROTENE
  10. CYANOCOBALAMIN. [Concomitant]
     Active Substance: CYANOCOBALAMIN
  11. RIBOFLAVIN [Concomitant]
     Active Substance: RIBOFLAVIN
  12. SODIUM SELENATE [Concomitant]
     Active Substance: SODIUM SELENATE
  13. BIOTIN [Concomitant]
     Active Substance: BIOTIN
  14. CALCIUM CARBONATE. [Concomitant]
     Active Substance: CALCIUM CARBONATE
  15. DL-ALPHA TOCOPHERYL ACETATE [Concomitant]
  16. NICOTINAMIDE [Concomitant]
     Active Substance: NIACINAMIDE
  17. NEXIUM 24HR [Suspect]
     Active Substance: ESOMEPRAZOLE MAGNESIUM
     Indication: ABDOMINAL DISCOMFORT
     Route: 048
     Dates: start: 201606
  18. CALCIUM PANTOTHENATE [Concomitant]
     Active Substance: CALCIUM PANTOTHENATE
  19. ZINC OXIDE. [Concomitant]
     Active Substance: ZINC OXIDE
  20. CUPRIC OXIDE [Concomitant]
  21. PHYTOMENADIONE [Concomitant]
     Active Substance: PHYTONADIONE
  22. RETINOL ACETATE [Concomitant]
  23. THIAMINE MONONITRATE [Concomitant]
     Active Substance: THIAMINE MONONITRATE
  24. VITAMIN D [Concomitant]
     Active Substance: CHOLECALCIFEROL
     Indication: ABDOMINAL DISCOMFORT
  25. LEVOTHYROXINE. [Concomitant]
     Active Substance: LEVOTHYROXINE
     Indication: THYROID DISORDER
     Dosage: 50 MG, 1X/DAY
  26. BAYER ASPIRIN [Concomitant]
     Active Substance: ASPIRIN
     Dosage: 81 MG, UNK
  27. IBUPROFEN. [Concomitant]
     Active Substance: IBUPROFEN
     Indication: BONE DISORDER
     Dosage: 200 MG, DAILY
  28. ONE A DAY WOMEN^S [Concomitant]
     Active Substance: MINERALS\VITAMINS
     Dosage: 1 DF, 1X/DAY
  29. CALCIUM CHEW [Concomitant]
     Indication: GASTRIC DISORDER
     Dosage: 500MG CALCIUM 1000 IU OF VITAMIN D
  30. FERROUS FUMARATE [Concomitant]
     Active Substance: FERROUS FUMARATE
  31. FOLIC ACID. [Concomitant]
     Active Substance: FOLIC ACID
  32. MANGANESE SULFATE. [Concomitant]
     Active Substance: MANGANESE SULFATE
  33. PYRIDOXINE HYDROCHLORIDE. [Concomitant]
     Active Substance: PYRIDOXINE HYDROCHLORIDE
  34. CALCIUM [Concomitant]
     Active Substance: CALCIUM

REACTIONS (2)
  - Product use issue [Not Recovered/Not Resolved]
  - Nausea [Not Recovered/Not Resolved]

NARRATIVE: CASE EVENT DATE: 201606
